FAERS Safety Report 17082851 (Version 2)
Quarter: 2019Q4

REPORT INFORMATION
  Report Type: Spontaneous
  Country: PR (occurrence: PR)
  Receive Date: 20191127
  Receipt Date: 20191205
  Transmission Date: 20200122
  Serious: Yes (Other)
  Sender: FDA-Public Use
  Company Number: PR-PFIZER INC-2019509727

PATIENT
  Age: 68 Year
  Sex: Female
  Weight: 50.34 kg

DRUGS (1)
  1. IBRANCE [Suspect]
     Active Substance: PALBOCICLIB
     Indication: BREAST CANCER FEMALE
     Dosage: 125 MG, CYCLIC (1X/DAY ON 21 DAYS AND 7 DAYS OFF)
     Route: 048
     Dates: start: 20191112

REACTIONS (4)
  - Decreased appetite [Unknown]
  - Product dose omission [Unknown]
  - Initial insomnia [Unknown]
  - Bone pain [Unknown]

NARRATIVE: CASE EVENT DATE: 20191122
